FAERS Safety Report 9168858 (Version 1)
Quarter: 2013Q1

REPORT INFORMATION
  Report Type: Spontaneous
  Country: US (occurrence: None)
  Receive Date: 20130314
  Receipt Date: 20130314
  Transmission Date: 20140127
  Serious: No
  Sender: FDA-Public Use
  Company Number: None

PATIENT
  Age: 7 Year
  Sex: Female
  Weight: 20.9 kg

DRUGS (1)
  1. LAMICTAL [Suspect]
     Indication: EPILEPSY
     Dosage: 1 DOSE BID PO
     Route: 048
     Dates: start: 20111216

REACTIONS (1)
  - Convulsion [None]
